FAERS Safety Report 26025030 (Version 1)
Quarter: 2025Q4

REPORT INFORMATION
  Report Type: Other
  Country: EU (occurrence: EU)
  Receive Date: 20251111
  Receipt Date: 20251111
  Transmission Date: 20260118
  Serious: Yes (Life-Threatening)
  Sender: ZYDUS PHARM
  Company Number: None

PATIENT

DRUGS (5)
  1. PAROXETINE [Suspect]
     Active Substance: PAROXETINE
     Indication: Poisoning deliberate
     Dosage: UNK
     Route: 048
     Dates: start: 20250921, end: 20250921
  2. MIANSERIN HYDROCHLORIDE [Suspect]
     Active Substance: MIANSERIN HYDROCHLORIDE
     Indication: Poisoning deliberate
     Dosage: 570 MILLIGRAM
     Route: 048
     Dates: start: 20250921, end: 20250921
  3. ACETAMINOPHEN\BELLADONNA LEAF\CAFFEINE\OPIUM [Suspect]
     Active Substance: ACETAMINOPHEN\BELLADONNA LEAF\CAFFEINE\OPIUM
     Indication: Poisoning deliberate
     Dosage: 10 DOSAGE FORM 1 TOTAL
     Route: 048
     Dates: start: 20250921, end: 20250921
  4. CYAMEMAZINE [Suspect]
     Active Substance: CYAMEMAZINE
     Indication: Poisoning deliberate
     Dosage: 1125 MILLIGRAM 1 TOTAL
     Route: 048
     Dates: start: 20250921, end: 20250921
  5. PHLOROGLUCINOL\1,3,5-TRIMETHOXYBENZENE [Suspect]
     Active Substance: PHLOROGLUCINOL\1,3,5-TRIMETHOXYBENZENE
     Indication: Poisoning deliberate
     Dosage: UNK
     Route: 048
     Dates: start: 20250921, end: 20250921

REACTIONS (3)
  - Altered state of consciousness [Recovering/Resolving]
  - Pulmonary embolism [Recovering/Resolving]
  - Poisoning deliberate [Recovering/Resolving]

NARRATIVE: CASE EVENT DATE: 20250921
